FAERS Safety Report 6795958-X (Version None)
Quarter: 2010Q2

REPORT INFORMATION
  Report Type: 
  Country: None (occurrence: None)
  Receive Date: 20100625
  Receipt Date: 20100622
  Transmission Date: 20101027
  Serious: Yes (Death, Hospitalization)
  Sender: FDA-Public Use
  Company Number: B0661996A

PATIENT
  Age: 83 Year
  Sex: Male

DRUGS (1)
  1. ZINADOL [Suspect]
     Indication: HYPERPYREXIA
     Dosage: 7.5CC TWICE PER DAY
     Route: 065
     Dates: start: 20100601

REACTIONS (3)
  - DEATH [None]
  - RASH GENERALISED [None]
  - STEVENS-JOHNSON SYNDROME [None]
